FAERS Safety Report 6993200-8 (Version None)
Quarter: 2010Q3

REPORT INFORMATION
  Report Type: 
  Country: None (occurrence: None)
  Receive Date: 20100917
  Receipt Date: 20100113
  Transmission Date: 20110219
  Serious: Yes (Hospitalization, Other)
  Sender: FDA-Public Use
  Company Number: US-ASTRAZENECA-2009UW13461

PATIENT
  Age: 17399 Day
  Sex: Male
  Weight: 109.3 kg

DRUGS (16)
  1. SEROQUEL [Suspect]
     Indication: INSOMNIA
     Dosage: 200 MG, 400 MG TO 600 MG
     Route: 048
     Dates: start: 20020101
  2. SEROQUEL [Suspect]
     Indication: POST-TRAUMATIC STRESS DISORDER
     Dosage: 200 MG, 400 MG TO 600 MG
     Route: 048
     Dates: start: 20020101
  3. SEROQUEL [Suspect]
     Route: 048
     Dates: start: 20021201
  4. SEROQUEL [Suspect]
     Route: 048
     Dates: start: 20021201
  5. SEROQUEL [Suspect]
     Dosage: 300-400 MG
     Route: 048
     Dates: start: 20060616
  6. SEROQUEL [Suspect]
     Dosage: 300-400 MG
     Route: 048
     Dates: start: 20060616
  7. SEROQUEL [Suspect]
     Route: 048
     Dates: start: 20050907
  8. SEROQUEL [Suspect]
     Route: 048
     Dates: start: 20050907
  9. CLONAZEPAM [Concomitant]
     Dates: start: 20020101
  10. CLONAZEPAM [Concomitant]
     Dates: start: 20050907
  11. EFFEXOR [Concomitant]
     Dosage: 75 MG TO 150 MG
     Dates: start: 20020101
  12. EFFEXOR [Concomitant]
     Dates: start: 20050907
  13. NOVOLIN 70/30 [Concomitant]
     Dosage: 30 UNITS IN AM AND 20 UNITS IN THE EVENING
     Dates: start: 20050907
  14. ACTOS [Concomitant]
     Dates: start: 20050907
  15. CAPTOPRIL [Concomitant]
     Dates: start: 20050907
  16. ANTARA (MICRONIZED) [Concomitant]
     Indication: BLOOD TRIGLYCERIDES INCREASED
     Dates: start: 20050907

REACTIONS (3)
  - BLOOD CHOLESTEROL INCREASED [None]
  - DIABETIC COMA [None]
  - TYPE 2 DIABETES MELLITUS [None]
